FAERS Safety Report 24693752 (Version 1)
Quarter: 2024Q4

REPORT INFORMATION
  Report Type: Spontaneous
  Country: US (occurrence: US)
  Receive Date: 20241204
  Receipt Date: 20241204
  Transmission Date: 20250115
  Serious: Yes (Hospitalization)
  Sender: AMNEAL
  Company Number: US-AMNEAL PHARMACEUTICALS-2024-AMRX-04345

PATIENT
  Age: 30 Year
  Sex: Male
  Weight: 82.8 kg

DRUGS (1)
  1. PLERIXAFOR [Suspect]
     Active Substance: PLERIXAFOR
     Indication: Product used for unknown indication
     Dosage: 24 MG/1.2ML , ONCE
     Route: 058
     Dates: start: 20241119

REACTIONS (2)
  - Hypoaesthesia [Unknown]
  - Blood urine present [Unknown]

NARRATIVE: CASE EVENT DATE: 20241119
